FAERS Safety Report 16074130 (Version 2)
Quarter: 2019Q3

REPORT INFORMATION
  Report Type: Report from Study
  Country: CA (occurrence: CA)
  Receive Date: 20190314
  Receipt Date: 20190923
  Transmission Date: 20191004
  Serious: Yes (Hospitalization, Other)
  Sender: FDA-Public Use
  Company Number: CA-INCYTE CORPORATION-2016IN001963

PATIENT

DRUGS (13)
  1. JAKAVI [Suspect]
     Active Substance: RUXOLITINIB
     Dosage: 10 MG, BID
     Route: 048
  2. JAKAVI [Suspect]
     Active Substance: RUXOLITINIB
     Dosage: 15 MG, UNK
     Route: 048
  3. CANDESARTAN. [Concomitant]
     Active Substance: CANDESARTAN
     Indication: PRODUCT USED FOR UNKNOWN INDICATION
     Dosage: UNK
     Route: 065
  4. AMLODIPINE [Concomitant]
     Active Substance: AMLODIPINE BESYLATE
     Indication: PRODUCT USED FOR UNKNOWN INDICATION
     Dosage: UNK
     Route: 065
  5. JAKAVI [Suspect]
     Active Substance: RUXOLITINIB
     Indication: POLYCYTHAEMIA VERA
     Dosage: 10 MG, BID
     Route: 048
     Dates: start: 20160210
  6. ACETAMINOPHEN. [Concomitant]
     Active Substance: ACETAMINOPHEN
     Indication: PRODUCT USED FOR UNKNOWN INDICATION
     Dosage: UNK
     Route: 065
  7. ASA [Concomitant]
     Active Substance: ASPIRIN
     Indication: PRODUCT USED FOR UNKNOWN INDICATION
     Dosage: UNK
     Route: 065
  8. SPIRIVA [Concomitant]
     Active Substance: TIOTROPIUM BROMIDE MONOHYDRATE
     Indication: PRODUCT USED FOR UNKNOWN INDICATION
     Dosage: UNK
     Route: 065
  9. CALCIUM [Concomitant]
     Active Substance: CALCIUM
     Indication: PRODUCT USED FOR UNKNOWN INDICATION
     Dosage: UNK
     Route: 065
  10. JAKAVI [Suspect]
     Active Substance: RUXOLITINIB
     Dosage: 15 MG, BID
     Route: 048
  11. JAKAVI [Suspect]
     Active Substance: RUXOLITINIB
     Dosage: 15 MG, TID
     Route: 048
  12. HYDREA [Concomitant]
     Active Substance: HYDROXYUREA
     Indication: PRODUCT USED FOR UNKNOWN INDICATION
     Dosage: UNK, QW3
     Route: 065
  13. OXAZEPAM. [Concomitant]
     Active Substance: OXAZEPAM
     Indication: PRODUCT USED FOR UNKNOWN INDICATION
     Dosage: UNK
     Route: 065

REACTIONS (22)
  - Peripheral swelling [Unknown]
  - Increased appetite [Unknown]
  - Balance disorder [Unknown]
  - Pleural effusion [Recovering/Resolving]
  - Platelet count decreased [Recovered/Resolved]
  - Dysgeusia [Unknown]
  - Anaemia [Unknown]
  - Oral discomfort [Unknown]
  - Dyspnoea [Recovering/Resolving]
  - Weight increased [Not Recovered/Not Resolved]
  - Stomatitis [Unknown]
  - Platelet count decreased [Recovering/Resolving]
  - Pulmonary embolism [Recovering/Resolving]
  - Epistaxis [Unknown]
  - Cardiac failure [Recovering/Resolving]
  - Inappropriate schedule of product administration [Unknown]
  - Flatulence [Unknown]
  - Implant site pain [Unknown]
  - Memory impairment [Unknown]
  - Aphasia [Unknown]
  - Weight decreased [Unknown]
  - Tongue discomfort [Not Recovered/Not Resolved]

NARRATIVE: CASE EVENT DATE: 201707
